FAERS Safety Report 23736968 (Version 1)
Quarter: 2024Q2

REPORT INFORMATION
  Report Type: Spontaneous
  Country: GB (occurrence: None)
  Receive Date: 20240412
  Receipt Date: 20240412
  Transmission Date: 20240716
  Serious: Yes (Other)
  Sender: FDA-Public Use
  Company Number: 2024A085127

PATIENT
  Age: 68 Year
  Sex: Female
  Weight: 81 kg

DRUGS (5)
  1. ROSUVASTATIN [Suspect]
     Active Substance: ROSUVASTATIN
     Dosage: 5
     Dates: start: 20230927
  2. DULOXETINE [Concomitant]
     Active Substance: DULOXETINE
     Dosage: TAKE ONE CAPSULE TWICE A DAY, AFTER 3 DAYS INCR...
     Dates: start: 20231114
  3. LEVOTHYROXINE [Concomitant]
     Active Substance: LEVOTHYROXINE\LEVOTHYROXINE SODIUM
     Dosage: 1; EACH MORNING FOR THYROID
     Dates: start: 20230216
  4. NAPROXEN [Concomitant]
     Active Substance: NAPROXEN
     Dosage: 1; WITH FOOD
     Dates: start: 20230216
  5. OMEPRAZOLE [Concomitant]
     Active Substance: OMEPRAZOLE
     Dosage: 1; WHILE TAKING NAPROXEN
     Dates: start: 20230216

REACTIONS (3)
  - Oral pain [Recovering/Resolving]
  - Myalgia [Recovering/Resolving]
  - Pruritus [Unknown]
